FAERS Safety Report 4294563-7 (Version None)
Quarter: 2004Q1

REPORT INFORMATION
  Report Type: 
  Country: None (occurrence: None)
  Receive Date: 20040211
  Receipt Date: 20040203
  Transmission Date: 20041129
  Serious: Yes (Death)
  Sender: FDA-Public Use
  Company Number: 2004AP00618

PATIENT
  Age: 43 Year
  Sex: Male

DRUGS (3)
  1. MORPHINE [Suspect]
     Indication: DRUG ABUSER
  2. METHAMPHETAMINE HCL [Suspect]
     Indication: DRUG ABUSER
  3. COCAINE [Concomitant]

REACTIONS (10)
  - BRAIN OEDEMA [None]
  - DRUG ABUSER [None]
  - DRUG INTERACTION POTENTIATION [None]
  - DRUG TOXICITY [None]
  - HEPATIC STEATOSIS [None]
  - HEPATITIS C [None]
  - HYPERTHERMIA [None]
  - INJECTION SITE SCAR [None]
  - PULMONARY OEDEMA [None]
  - VOMITING [None]
